FAERS Safety Report 18424378 (Version 1)
Quarter: 2020Q4

REPORT INFORMATION
  Report Type: Spontaneous
  Country: US (occurrence: US)
  Receive Date: 20201026
  Receipt Date: 20201026
  Transmission Date: 20210114
  Serious: Yes (Hospitalization, Other)
  Sender: FDA-Public Use
  Company Number: US-PURDUE PHARMA-USA-2020-0151572

PATIENT
  Age: 50 Year
  Sex: Female
  Weight: 49.89 kg

DRUGS (5)
  1. GABAPENTIN. [Concomitant]
     Active Substance: GABAPENTIN
     Indication: PRODUCT USED FOR UNKNOWN INDICATION
     Dosage: UNK
     Route: 048
  2. OXYCODONE HYDROCHLORIDE (SIMILAR TO NDA 22-272) [Suspect]
     Active Substance: OXYCODONE HYDROCHLORIDE
     Indication: PAIN
     Dosage: 10MG  3-6 TABLETS, DAILY
     Route: 048
     Dates: start: 2016
  3. DICLOFENAC [Concomitant]
     Active Substance: DICLOFENAC
     Indication: PRODUCT USED FOR UNKNOWN INDICATION
     Dosage: UNK
     Route: 065
  4. AMITRIPTYLINE [Concomitant]
     Active Substance: AMITRIPTYLINE
     Indication: PRODUCT USED FOR UNKNOWN INDICATION
     Dosage: UNK
     Route: 065
  5. OXYCONTIN [Suspect]
     Active Substance: OXYCODONE HYDROCHLORIDE
     Indication: PRODUCT USED FOR UNKNOWN INDICATION
     Dosage: UNK
     Route: 048

REACTIONS (17)
  - Feeling of body temperature change [Unknown]
  - Vomiting [Unknown]
  - Drug dependence [Unknown]
  - Loss of consciousness [Unknown]
  - Blood pressure abnormal [Unknown]
  - Drug withdrawal syndrome [Unknown]
  - Constipation [Unknown]
  - Injury [Unknown]
  - Diarrhoea [Unknown]
  - Emotional distress [Unknown]
  - Pain [Unknown]
  - Overdose [Unknown]
  - Malaise [Unknown]
  - Therapeutic product effect decreased [Unknown]
  - Weight decreased [Unknown]
  - Hyperhidrosis [Unknown]
  - Nausea [Unknown]

NARRATIVE: CASE EVENT DATE: 201911
